FAERS Safety Report 6122037-7 (Version None)
Quarter: 2009Q1

REPORT INFORMATION
  Report Type: 
  Country: None (occurrence: None)
  Receive Date: 20090316
  Receipt Date: 20090309
  Transmission Date: 20090719
  Serious: Yes (Other)
  Sender: FDA-Public Use
  Company Number: CHNY2009NZ01225

PATIENT
  Sex: Female
  Weight: 111 kg

DRUGS (6)
  1. HABITROL [Suspect]
     Indication: SMOKING CESSATION THERAPY
     Dosage: 21 MG, QD, TRANSDERMAL
     Route: 062
     Dates: end: 20090309
  2. PREDNISONE TAB [Concomitant]
  3. VENTOLIN [Concomitant]
  4. COMBIVENT [Concomitant]
  5. SIMVASTATIN [Concomitant]
  6. OMEPRAZOLE [Concomitant]

REACTIONS (3)
  - CARDIAC OPERATION [None]
  - HYPOAESTHESIA [None]
  - MALAISE [None]
